FAERS Safety Report 7878607-9 (Version None)
Quarter: 2011Q4

REPORT INFORMATION
  Report Type: 
  Country: None (occurrence: None)
  Receive Date: 20111101
  Receipt Date: 20111101
  Transmission Date: 20120403
  Serious: Yes (Other)
  Sender: FDA-Public Use
  Company Number: None

PATIENT
  Age: 24 Year
  Sex: Female
  Weight: 56.245 kg

DRUGS (1)
  1. MONONESSA [Suspect]
     Indication: ACNE
     Dosage: 1 PILL
     Route: 048

REACTIONS (4)
  - PALPITATIONS [None]
  - BLOOD PRESSURE SYSTOLIC INCREASED [None]
  - HEART RATE INCREASED [None]
  - BODY TEMPERATURE INCREASED [None]
